FAERS Safety Report 10244230 (Version 1)
Quarter: 2014Q2

REPORT INFORMATION
  Report Type: Spontaneous
  Country: US (occurrence: US)
  Receive Date: 20140618
  Receipt Date: 20140618
  Transmission Date: 20141212
  Serious: No
  Sender: FDA-Public Use
  Company Number: US-B.I. PHARMACEUTICALS,INC./RIDGEFIELD-2014-BI-26017BP

PATIENT
  Age: 49 Year
  Sex: Female
  Weight: 65 kg

DRUGS (13)
  1. SPIRIVA [Suspect]
     Indication: EMPHYSEMA
     Dosage: 18 MCG
     Route: 055
     Dates: start: 201312, end: 201312
  2. ALBUTEROL [Concomitant]
     Indication: EMPHYSEMA
     Dosage: FORMULATION: INHALATION SOLUTION; STRENGTH: 0.083%; DAILY DOSE: 0.249%
     Route: 055
     Dates: start: 2011
  3. IPRATROPIUM [Concomitant]
     Indication: EMPHYSEMA
     Dosage: FORMULATION: INHALATION SOLUTION; STRENGTH: 0.02%; DAILY DOSE: 0.04%
     Route: 055
     Dates: start: 2011
  4. METOPROLOL [Concomitant]
     Indication: HYPERTENSION
     Dosage: 50 MG
     Route: 048
     Dates: start: 201404
  5. SYMBICORT [Concomitant]
     Indication: EMPHYSEMA
     Dosage: STRENGTH: 160/4.5MCG; DAILY DOSE: 320/9MCG
     Route: 055
     Dates: start: 2011
  6. VENTOLIN HFA [Concomitant]
     Indication: EMPHYSEMA
     Route: 055
     Dates: start: 2011
  7. DIAZEPAM [Concomitant]
     Indication: ANXIETY
     Route: 048
     Dates: start: 201101
  8. LEVOTHYROXINE [Concomitant]
     Indication: HYPOTHYROIDISM
     Dosage: 75 MCG
     Route: 048
     Dates: start: 201206
  9. BUSPAR [Concomitant]
     Dosage: 30 MG
     Route: 048
     Dates: start: 201202
  10. AMITRIPTYLINE [Concomitant]
     Indication: ANXIETY
     Route: 048
     Dates: start: 201307
  11. POTASSIUM CL ER [Concomitant]
     Indication: BLOOD POTASSIUM DECREASED
     Dosage: 10 MEQ
     Route: 048
     Dates: start: 201309
  12. VITAMIN D [Concomitant]
     Indication: OSTEOPOROSIS
     Dosage: FORMULATION: CAPLET; STRENGTH: 1000U; DAILY DOSE: 2000U
     Route: 048
     Dates: start: 201207
  13. EYE VITAMIN [Concomitant]
     Indication: SUPPLEMENTATION THERAPY
     Route: 048
     Dates: start: 2009

REACTIONS (1)
  - Dyspnoea [Recovered/Resolved]
